FAERS Safety Report 11853621 (Version 1)
Quarter: 2015Q4

REPORT INFORMATION
  Report Type: Spontaneous
  Country: US (occurrence: US)
  Receive Date: 20151219
  Receipt Date: 20151219
  Transmission Date: 20160305
  Serious: No
  Sender: FDA-Public Use
  Company Number: US-BAUSCH-BL-2015-019044

PATIENT
  Age: 59 Year
  Sex: Female

DRUGS (2)
  1. XENAZINE [Suspect]
     Active Substance: TETRABENAZINE
     Indication: HUNTINGTON^S DISEASE
     Route: 048
     Dates: start: 20150604, end: 2015
  2. CITALOPRAM [Concomitant]
     Active Substance: CITALOPRAM HYDROBROMIDE
     Indication: PRODUCT USED FOR UNKNOWN INDICATION

REACTIONS (3)
  - Depression [Unknown]
  - Malaise [Unknown]
  - Medication error [Unknown]

NARRATIVE: CASE EVENT DATE: 201507
